FAERS Safety Report 8310159-1 (Version None)
Quarter: 2012Q2

REPORT INFORMATION
  Report Type: 
  Country: None (occurrence: None)
  Receive Date: 20120425
  Receipt Date: 20120413
  Transmission Date: 20120825
  Serious: No
  Sender: FDA-Public Use
  Company Number: US-ROXANE LABORATORIES, INC.-2012-RO-01069RO

PATIENT
  Sex: Female
  Weight: 52 kg

DRUGS (5)
  1. CRESTOR [Concomitant]
     Indication: BLOOD CHOLESTEROL INCREASED
     Dosage: 5 MG
  2. NARATRIPTAN HYDROCHLORIDE (AMERGE) [Suspect]
     Indication: MIGRAINE
     Route: 048
     Dates: start: 20000101
  3. FIORICET [Concomitant]
     Indication: MIGRAINE
  4. LEVOTHYROXINE SODIUM [Concomitant]
     Indication: THYROID DISORDER
     Dosage: 50 MCG
  5. GLAUCOMA MEDICATION [Concomitant]
     Indication: GLAUCOMA

REACTIONS (2)
  - DRUG INEFFECTIVE [None]
  - MUSCULOSKELETAL STIFFNESS [None]
